FAERS Safety Report 4285442-X (Version None)
Quarter: 2004Q1

REPORT INFORMATION
  Report Type: 
  Country: None (occurrence: None)
  Receive Date: 20040202
  Receipt Date: 20040202
  Transmission Date: 20041129
  Serious: Yes (Hospitalization)
  Sender: FDA-Public Use
  Company Number: None

PATIENT
  Sex: Male

DRUGS (11)
  1. ATENOLOL [Suspect]
     Indication: ATRIAL FIBRILLATION
     Dosage: 50 MG PO Q 8H
     Route: 048
     Dates: start: 20030923, end: 20030924
  2. ATENOLOL [Suspect]
     Indication: HYPERTENSION
     Dosage: 50 MG PO Q 8H
     Route: 048
     Dates: start: 20030923, end: 20030924
  3. RANITIDINE [Concomitant]
  4. ENALAPRIL MALEATE [Concomitant]
  5. FUROSEMIDE [Concomitant]
  6. WARFARIN SODIUM [Concomitant]
  7. ASPIRIN [Concomitant]
  8. AMIODARONE HCL [Concomitant]
  9. POTASSIUM [Concomitant]
  10. FENTANYL [Concomitant]
  11. HYDROMORPHONE HCL [Concomitant]

REACTIONS (5)
  - ATRIAL FIBRILLATION [None]
  - BLOOD PRESSURE SYSTOLIC DECREASED [None]
  - FEMORAL ARTERY ANEURYSM [None]
  - HEART RATE DECREASED [None]
  - POST PROCEDURAL COMPLICATION [None]
